FAERS Safety Report 9959897 (Version 1)
Quarter: 2014Q1

REPORT INFORMATION
  Report Type: Spontaneous
  Country: US (occurrence: None)
  Receive Date: 20140228
  Receipt Date: 20140228
  Transmission Date: 20141002
  Serious: No
  Sender: FDA-Public Use
  Company Number: None

PATIENT
  Age: 56 Year
  Sex: Female

DRUGS (14)
  1. ERIBULIN MESYLATE (HALAVEN) [Suspect]
     Indication: BREAST CANCER METASTATIC
     Dosage: 1.4 MG/M2 (2.6 MG TOTAL DOSE), DAYS 1 AND 8, Q21 DAY, IVP
     Dates: start: 201310
  2. LIRAGLUTIDE [Concomitant]
  3. GLIMEPIRIDE [Concomitant]
  4. INSULIN DETEMIR [Concomitant]
  5. METFORMIN [Concomitant]
  6. VITAMIN D [Concomitant]
  7. FLUTICASONE [Concomitant]
  8. CETRIZINE [Concomitant]
  9. MONTELUKAST [Concomitant]
  10. MVI [Concomitant]
  11. ATENOLOL [Concomitant]
  12. SERTRALINE [Concomitant]
  13. ESOMEPRAZOLE [Concomitant]
  14. OXYCODONE-ACETAMINOPHEN [Concomitant]

REACTIONS (2)
  - Blood glucose abnormal [None]
  - Condition aggravated [None]
